FAERS Safety Report 7275829-5 (Version None)
Quarter: 2011Q1

REPORT INFORMATION
  Report Type: 
  Country: None (occurrence: None)
  Receive Date: 20110204
  Receipt Date: 20110128
  Transmission Date: 20110831
  Serious: Yes (Hospitalization, Other)
  Sender: FDA-Public Use
  Company Number: US-US-EMD SERONO, INC.-232715J09USA

PATIENT
  Sex: Female

DRUGS (11)
  1. WARFARIN [Concomitant]
  2. FERROUS SULFATE TAB [Concomitant]
  3. AMITRIPTYLINE HCL [Concomitant]
  4. DIAZEPAM [Concomitant]
     Indication: MULTIPLE SCLEROSIS
  5. SINGULAIR [Concomitant]
  6. XENADERM [Concomitant]
  7. REBIF [Suspect]
     Indication: MULTIPLE SCLEROSIS
     Route: 058
     Dates: start: 20040527
  8. BACLOFEN [Concomitant]
     Indication: MULTIPLE SCLEROSIS
  9. ASTELIN [Concomitant]
  10. HYDROCHLOROTHIAZIDE [Concomitant]
  11. ALBUTEROL SULFATE [Concomitant]

REACTIONS (3)
  - DIABETES MELLITUS [None]
  - ANAEMIA [None]
  - CYSTITIS [None]
